FAERS Safety Report 9106457 (Version 2)
Quarter: 2013Q2

REPORT INFORMATION
  Report Type: Spontaneous
  Country: AR (occurrence: AR)
  Receive Date: 20130221
  Receipt Date: 20130604
  Transmission Date: 20140414
  Serious: Yes (Hospitalization, Other)
  Sender: FDA-Public Use
  Company Number: AR-TEVA-383136USA

PATIENT
  Age: 42 Year
  Sex: Female

DRUGS (5)
  1. RIBOMUSTIN [Suspect]
     Indication: PLASMA CELL MYELOMA
     Dates: start: 20121127, end: 20121128
  2. RIBOMUSTIN [Suspect]
     Dates: start: 20121227, end: 20121228
  3. LENALIDOMIDE [Suspect]
     Indication: PLASMA CELL MYELOMA
     Dosage: 10 MILLIGRAM DAILY; UID/QD, ONCE DAILY FOR 21 DAYS
  4. DEXAMETHASONE [Suspect]
     Indication: PLASMA CELL MYELOMA
     Dosage: 80 MILLIGRAM DAILY;
  5. ACICLOVIR [Concomitant]
     Indication: PROPHYLAXIS
     Dosage: 400 MILLIGRAM DAILY; DAILY

REACTIONS (5)
  - Erythema multiforme [Recovered/Resolved]
  - Pyrexia [Recovered/Resolved]
  - Oral disorder [Recovered/Resolved]
  - Drug eruption [Recovered/Resolved]
  - Respiratory tract infection [Recovered/Resolved]
